FAERS Safety Report 7915019-3 (Version None)
Quarter: 2011Q4

REPORT INFORMATION
  Report Type: 
  Country: None (occurrence: None)
  Receive Date: 20111115
  Receipt Date: 20101012
  Transmission Date: 20120403
  Serious: No
  Sender: FDA-Public Use
  Company Number: US-BAYER-201037611NA

PATIENT
  Age: 51 Year
  Sex: Female

DRUGS (2)
  1. CLIMARA [Suspect]
     Indication: HOT FLUSH
     Dosage: 50 MCG/24HR, UNK
     Route: 062
     Dates: start: 20100201
  2. CLIMARA [Suspect]
     Indication: ATROPHIC VULVOVAGINITIS

REACTIONS (3)
  - DRY SKIN [None]
  - POOR QUALITY SLEEP [None]
  - PRODUCT ADHESION ISSUE [None]
